FAERS Safety Report 12100148 (Version 1)
Quarter: 2016Q1

REPORT INFORMATION
  Report Type: Spontaneous
  Country: US (occurrence: None)
  Receive Date: 20160219
  Receipt Date: 20160219
  Transmission Date: 20160526
  Serious: Yes (Other)
  Sender: FDA-Public Use
  Company Number: None

PATIENT
  Age: 53 Year
  Sex: Female
  Weight: 67.59 kg

DRUGS (6)
  1. ZANTAC [Suspect]
     Active Substance: RANITIDINE HYDROCHLORIDE
     Indication: GASTROOESOPHAGEAL REFLUX DISEASE
     Route: 048
     Dates: start: 20151207, end: 20160210
  2. ATIVAN [Concomitant]
     Active Substance: LORAZEPAM
  3. ZANTAC [Concomitant]
     Active Substance: RANITIDINE HYDROCHLORIDE
  4. VITAMIN B12 [Concomitant]
     Active Substance: CYANOCOBALAMIN
  5. GUMMY VITAMINS [Concomitant]
  6. PROTONICS [Concomitant]

REACTIONS (6)
  - Fear [None]
  - Thinking abnormal [None]
  - Panic attack [None]
  - Feeling abnormal [None]
  - Abdominal pain upper [None]
  - Agitation [None]
